FAERS Safety Report 14149392 (Version 3)
Quarter: 2018Q1

REPORT INFORMATION
  Report Type: Spontaneous
  Country: US (occurrence: US)
  Receive Date: 20171101
  Receipt Date: 20180109
  Transmission Date: 20180508
  Serious: Yes (Other)
  Sender: FDA-Public Use
  Company Number: US-PFIZER INC-2017468255

PATIENT
  Age: 65 Year
  Sex: Male

DRUGS (1)
  1. BESPONSA [Suspect]
     Active Substance: INOTUZUMAB OZOGAMICIN
     Dosage: UNK

REACTIONS (6)
  - Sensory loss [Unknown]
  - Fatigue [Unknown]
  - White blood cell count decreased [Unknown]
  - Blindness [Unknown]
  - Parosmia [Unknown]
  - Visual impairment [Unknown]
